FAERS Safety Report 4789436-7 (Version None)
Quarter: 2005Q4

REPORT INFORMATION
  Report Type: 
  Country: None (occurrence: None)
  Receive Date: 20051004
  Receipt Date: 20050923
  Transmission Date: 20060501
  Serious: Yes (Hospitalization)
  Sender: FDA-Public Use
  Company Number: HQWYE303608SEP05

PATIENT
  Age: 66 Year
  Sex: Male

DRUGS (9)
  1. CYCLOSPORINE [Suspect]
     Indication: PROPHYLAXIS AGAINST TRANSPLANT REJECTION
     Dosage: 150 MG 1X PER 12 HR, ORAL
     Route: 048
     Dates: start: 20050831, end: 20050908
  2. CIPROFLOXACIN [Concomitant]
  3. CLONIDINE [Concomitant]
  4. GLYBURIDE [Concomitant]
  5. GLYBURIDE [Concomitant]
  6. CELLCEPT [Concomitant]
  7. SIMVASTATIN [Concomitant]
  8. AMLODIPINE [Concomitant]
  9. METOPROLOL TARTRATE [Concomitant]

REACTIONS (3)
  - HAEMOLYTIC URAEMIC SYNDROME [None]
  - RENAL FAILURE ACUTE [None]
  - THROMBOTIC MICROANGIOPATHY [None]
